FAERS Safety Report 10251292 (Version 1)
Quarter: 2014Q2

REPORT INFORMATION
  Report Type: Other
  Country: DE (occurrence: DE)
  Receive Date: 20140621
  Receipt Date: 20140621
  Transmission Date: 20141212
  Serious: No
  Sender: FDA-Public Use
  Company Number: DE-LUPIN PHARMACEUTICALS INC.-E2B_00001904

PATIENT
  Age: 72 Year
  Sex: Female
  Weight: 83 kg

DRUGS (13)
  1. FLUVASTATIN [Suspect]
     Indication: HYPERLIPIDAEMIA
     Route: 048
  2. FLUVASTATIN [Suspect]
     Route: 048
  3. SIMVASTATIN [Suspect]
     Indication: HYPERLIPIDAEMIA
     Route: 048
  4. SIMVASTATIN [Suspect]
     Route: 048
  5. ATORVASTATIN [Suspect]
     Indication: HYPERLIPIDAEMIA
     Route: 048
  6. ATORVASTATIN [Suspect]
     Route: 048
  7. ACARBOSE [Concomitant]
     Indication: TYPE 2 DIABETES MELLITUS
     Route: 048
  8. VELMETIA 50/1000 [Concomitant]
     Indication: TYPE 2 DIABETES MELLITUS
     Route: 048
  9. GLIMEPIRIDE [Concomitant]
     Indication: TYPE 2 DIABETES MELLITUS
     Route: 048
  10. BISOPROLOL [Concomitant]
     Indication: HYPERTENSION
     Route: 048
  11. ASS [Concomitant]
     Indication: CORONARY ARTERY DISEASE
     Route: 048
  12. CLOPIDOGREL [Concomitant]
     Indication: CORONARY ARTERY DISEASE
     Route: 048
  13. MOLSIDOMIN [Concomitant]
     Indication: CORONARY ARTERY DISEASE
     Route: 048

REACTIONS (4)
  - General physical health deterioration [Recovered/Resolved]
  - Arthralgia [Recovered/Resolved]
  - Myalgia [Recovered/Resolved]
  - Pruritus generalised [Recovered/Resolved]
